FAERS Safety Report 19718522 (Version 1)
Quarter: 2021Q3

REPORT INFORMATION
  Report Type: Spontaneous
  Country: US (occurrence: US)
  Receive Date: 20210818
  Receipt Date: 20210818
  Transmission Date: 20211014
  Serious: Yes (Life-Threatening, Hospitalization)
  Sender: FDA-Public Use
  Company Number: None

PATIENT
  Age: 56 Year
  Sex: Female
  Weight: 81 kg

DRUGS (1)
  1. PIQRAY [Suspect]
     Active Substance: ALPELISIB
     Indication: CHEMOTHERAPY
     Dates: start: 20210721, end: 20210730

REACTIONS (5)
  - Dehydration [None]
  - Hypersensitivity [None]
  - Ventricular tachycardia [None]
  - Hypovolaemic shock [None]
  - Urinary retention [None]

NARRATIVE: CASE EVENT DATE: 20210731
